FAERS Safety Report 10196325 (Version 1)
Quarter: 2014Q2

REPORT INFORMATION
  Report Type: Spontaneous
  Country: US (occurrence: None)
  Receive Date: 20140523
  Receipt Date: 20140523
  Transmission Date: 20141212
  Serious: Yes (Hospitalization)
  Sender: FDA-Public Use
  Company Number: None

PATIENT
  Age: 65 Year
  Sex: Female
  Weight: 67 kg

DRUGS (7)
  1. GAMMAGARD [Suspect]
     Indication: SECONDARY IMMUNODEFICIENCY
     Dosage: 1 DOSE
     Route: 042
  2. FLUCONAZOLE [Concomitant]
  3. NORCO [Concomitant]
  4. TYLENOL [Concomitant]
  5. DILTIAZEM [Concomitant]
  6. HEPARIN [Concomitant]
  7. ACYCLOVIR [Concomitant]

REACTIONS (4)
  - Back pain [None]
  - Dyspnoea [None]
  - Heart rate increased [None]
  - Blood pressure increased [None]
